FAERS Safety Report 9192084 (Version 1)
Quarter: 2013Q1

REPORT INFORMATION
  Report Type: Spontaneous
  Country: US (occurrence: None)
  Receive Date: 20130326
  Receipt Date: 20130326
  Transmission Date: 20140127
  Serious: Yes (Hospitalization)
  Sender: FDA-Public Use
  Company Number: None

PATIENT
  Sex: Female

DRUGS (5)
  1. VERAPAMIL - SLOW RELEASE [Suspect]
  2. POTASSIUM [Concomitant]
  3. FUROSEMIDE [Concomitant]
  4. PREVACID [Concomitant]
  5. AZELASTINE [Suspect]

REACTIONS (1)
  - Myocardial infarction [None]
